FAERS Safety Report 7511476-5 (Version None)
Quarter: 2011Q2

REPORT INFORMATION
  Report Type: 
  Country: None (occurrence: None)
  Receive Date: 20110531
  Receipt Date: 20110518
  Transmission Date: 20111010
  Serious: No
  Sender: FDA-Public Use
  Company Number: US-JNJFOC-20110508994

PATIENT
  Sex: Male
  Weight: 108.86 kg

DRUGS (8)
  1. LYRICA [Concomitant]
     Indication: NEUROPATHY PERIPHERAL
     Dosage: 50 UNITS
     Route: 048
     Dates: start: 20110201
  2. DURAGESIC-100 [Suspect]
     Indication: NERVOUS SYSTEM DISORDER
     Route: 062
     Dates: start: 20110508, end: 20110511
  3. DURAGESIC-100 [Suspect]
     Indication: NEUROPATHY PERIPHERAL
     Route: 062
     Dates: start: 20110508, end: 20110511
  4. DEXTROAMPHETAMINE [Concomitant]
     Indication: ATTENTION DEFICIT/HYPERACTIVITY DISORDER
     Route: 048
     Dates: start: 19960101
  5. MELOXICAM [Concomitant]
     Indication: PAIN
     Dosage: 50 UNITS
     Route: 048
     Dates: start: 20110429
  6. FENTANYL-100 [Concomitant]
     Indication: PAIN
     Dosage: 50 UNITS
     Route: 062
     Dates: start: 20110511
  7. NOVOLOG [Concomitant]
     Indication: DIABETES MELLITUS
     Dosage: SLIDING SCALES/AFTER MEALS
     Route: 058
     Dates: start: 20040101
  8. LANTUS [Concomitant]
     Indication: DIABETES MELLITUS
     Dosage: 50 UNITS
     Route: 058
     Dates: start: 20040101

REACTIONS (3)
  - DRUG INEFFECTIVE [None]
  - WRONG TECHNIQUE IN DRUG USAGE PROCESS [None]
  - PRODUCT QUALITY ISSUE [None]
